FAERS Safety Report 23090909 (Version 4)
Quarter: 2023Q4

REPORT INFORMATION
  Report Type: Report from Study
  Country: KR (occurrence: KR)
  Receive Date: 20231020
  Receipt Date: 20231127
  Transmission Date: 20240109
  Serious: Yes (Hospitalization)
  Sender: FDA-Public Use
  Company Number: KR-Eisai Medical Research-EC-2023-149567

PATIENT
  Age: 57 Year
  Sex: Male
  Weight: 63.0 kg

DRUGS (27)
  1. LENVATINIB [Suspect]
     Active Substance: LENVATINIB
     Indication: Squamous cell carcinoma of head and neck
     Route: 048
     Dates: start: 20230907, end: 20230908
  2. LENVATINIB [Suspect]
     Active Substance: LENVATINIB
     Route: 048
     Dates: start: 20230919
  3. SURFOLASE [Concomitant]
     Dates: start: 20221121
  4. ULTRACET [Concomitant]
     Active Substance: ACETAMINOPHEN\TRAMADOL HYDROCHLORIDE
     Dates: start: 20230731, end: 20230921
  5. MYPOL [CODEINE PHOSPHATE;IBUPROFEN;PARACETAMOL] [Concomitant]
     Dates: start: 20230830, end: 20230906
  6. OXYCODONE HYDROCHLORIDE [Concomitant]
     Active Substance: OXYCODONE HYDROCHLORIDE
     Dates: start: 20230830, end: 20230921
  7. NEWDOTOP [Concomitant]
     Dates: start: 20230830, end: 20230912
  8. TANTUM [BENZYDAMINE HYDROCHLORIDE] [Concomitant]
     Dates: start: 20221122
  9. MUCOMYST [Concomitant]
     Active Substance: ACETYLCYSTEINE
     Dates: start: 20230215
  10. NALOXONE HYDROCHLORIDE\OXYCODONE HYDROCHLORIDE [Concomitant]
     Active Substance: NALOXONE HYDROCHLORIDE\OXYCODONE HYDROCHLORIDE
     Dates: start: 20230823, end: 20230921
  11. LOPAINE [Concomitant]
     Dates: start: 20230907
  12. GODEX [ADENINE HYDROCHLORIDE;CARNITINE OROTATE;CYANOCOBALAMIN;LIVER;PY [Concomitant]
     Dates: start: 20230913, end: 20230924
  13. GODEX [ADENINE HYDROCHLORIDE;CARNITINE OROTATE;CYANOCOBALAMIN;LIVER;PY [Concomitant]
     Dates: start: 20230813
  14. KEROMIN [Concomitant]
     Dates: start: 20230913, end: 20230913
  15. MORPHINE SULFATE [Concomitant]
     Active Substance: MORPHINE SULFATE
     Dates: start: 20230913, end: 20230913
  16. RABIDUO [Concomitant]
     Dates: start: 201801
  17. STILLEN [Concomitant]
     Dates: start: 20230822, end: 20230905
  18. CEFDITOREN PIVOXIL [Concomitant]
     Active Substance: CEFDITOREN PIVOXIL
     Dates: start: 20230822, end: 20230905
  19. SYNATURA [Concomitant]
     Dates: start: 20230822, end: 20230905
  20. VARIDASE [Concomitant]
     Dates: start: 20230822, end: 20230905
  21. HYSONE [HYDROCORTISONE] [Concomitant]
  22. URSODIOL [Concomitant]
     Active Substance: URSODIOL
     Dates: start: 200801
  23. PROPRANOLOL HYDROCHLORIDE [Concomitant]
     Active Substance: PROPRANOLOL HYDROCHLORIDE
     Dates: start: 200801
  24. ROSUVAMIBE (EZETIMIBE, ROSUVASTATIN CALCIUM) Tablet ; JAN-2018 / Ongoi [Concomitant]
  25. CODEINE [Concomitant]
     Active Substance: CODEINE
     Dates: start: 20230411, end: 20230921
  26. MEGACE F [Concomitant]
     Dates: start: 20230614
  27. EZETIMIBE\ROSUVASTATIN [Concomitant]
     Active Substance: EZETIMIBE\ROSUVASTATIN
     Dates: start: 201801

REACTIONS (1)
  - Fistula [Not Recovered/Not Resolved]

NARRATIVE: CASE EVENT DATE: 20230917
